FAERS Safety Report 9926934 (Version 1)
Quarter: 2014Q1

REPORT INFORMATION
  Report Type: Spontaneous
  Country: US (occurrence: US)
  Receive Date: 20140226
  Receipt Date: 20140226
  Transmission Date: 20141002
  Serious: Yes (Other)
  Sender: FDA-Public Use
  Company Number: PHHY2014US022521

PATIENT
  Age: 9 Year
  Sex: Male

DRUGS (4)
  1. CICLOSPORIN [Suspect]
     Indication: IMMUNOSUPPRESSION
  2. MYCOPHENOLATE MOFETIL [Suspect]
     Indication: IMMUNOSUPPRESSION
  3. CORTICOSTEROIDS [Suspect]
     Indication: IMMUNOSUPPRESSION
     Route: 048
  4. CORTICOSTEROIDS [Suspect]
     Route: 061

REACTIONS (1)
  - Glaucoma [Unknown]
